FAERS Safety Report 14426645 (Version 2)
Quarter: 2018Q4

REPORT INFORMATION
  Report Type: Spontaneous
  Country: US (occurrence: US)
  Receive Date: 20180123
  Receipt Date: 20181128
  Transmission Date: 20190204
  Serious: No
  Sender: FDA-Public Use
  Company Number: US-ROCHE-2021097

PATIENT
  Age: 51 Year
  Sex: Female
  Weight: 108.96 kg

DRUGS (1)
  1. OCREVUS [Suspect]
     Active Substance: OCRELIZUMAB
     Indication: RELAPSING-REMITTING MULTIPLE SCLEROSIS
     Route: 065
     Dates: start: 201710

REACTIONS (3)
  - Headache [Recovered/Resolved]
  - Nausea [Recovered/Resolved]
  - Oropharyngeal pain [Recovered/Resolved]

NARRATIVE: CASE EVENT DATE: 201710
